FAERS Safety Report 17682538 (Version 6)
Quarter: 2021Q1

REPORT INFORMATION
  Report Type: Report from Study
  Country: CO (occurrence: CO)
  Receive Date: 20200418
  Receipt Date: 20210125
  Transmission Date: 20210419
  Serious: Yes (Other)
  Sender: FDA-Public Use
  Company Number: PHHY2017CO123346

PATIENT
  Age: 50 Year
  Sex: Female
  Weight: 64 kg

DRUGS (6)
  1. LOSARTAN. [Suspect]
     Active Substance: LOSARTAN
     Indication: HYPERTENSION
     Dosage: 100 MG, QD
     Route: 048
  2. SANDOSTATIN LAR DEPOT [Suspect]
     Active Substance: OCTREOTIDE ACETATE
     Indication: PANCREATIC NEUROENDOCRINE TUMOUR
     Dosage: 30 MG, QMO (ONCE A MONTH) (AMPOULE)
     Route: 030
     Dates: start: 20170521
  3. SANDOSTATIN LAR DEPOT [Suspect]
     Active Substance: OCTREOTIDE ACETATE
  4. DENOSUMAB [Concomitant]
     Active Substance: DENOSUMAB
     Indication: OSTEOARTHRITIS
     Dosage: 30 MG, QMO
     Route: 065
  5. SANDOSTATIN LAR DEPOT [Suspect]
     Active Substance: OCTREOTIDE ACETATE
     Indication: COLON CANCER
     Dosage: 30 MG, QMO
     Route: 030
     Dates: start: 20200507
  6. OXYCODONE [Concomitant]
     Active Substance: OXYCODONE
     Indication: PRODUCT USED FOR UNKNOWN INDICATION
     Dosage: 20 MG, UNKNOWN
     Route: 065

REACTIONS (41)
  - Diarrhoea haemorrhagic [Recovering/Resolving]
  - Cholelithiasis [Unknown]
  - Swelling [Unknown]
  - Pain [Recovered/Resolved]
  - Hypertension [Unknown]
  - Abdominal pain [Unknown]
  - Needle issue [Unknown]
  - Discomfort [Recovering/Resolving]
  - Musculoskeletal pain [Not Recovered/Not Resolved]
  - Malaise [Unknown]
  - Diarrhoea [Recovered/Resolved]
  - Hepatic neoplasm [Unknown]
  - Recurrent cancer [Unknown]
  - Malaise [Recovered/Resolved]
  - Recurrent cancer [Recovered/Resolved]
  - Feeling abnormal [Unknown]
  - Injection site haematoma [Unknown]
  - Pyrexia [Recovered/Resolved]
  - Dry mouth [Unknown]
  - Eating disorder [Unknown]
  - Paraesthesia [Unknown]
  - Bone pain [Unknown]
  - Chills [Recovered/Resolved]
  - Weight decreased [Unknown]
  - Feeling cold [Unknown]
  - Metabolic disorder [Unknown]
  - Headache [Unknown]
  - Injection site mass [Recovered/Resolved]
  - Malignant neoplasm progression [Unknown]
  - Blood disorder [Unknown]
  - Peripheral swelling [Unknown]
  - Taste disorder [Unknown]
  - Burning sensation [Unknown]
  - Folliculitis [Unknown]
  - Blood calcium increased [Unknown]
  - Cyst [Unknown]
  - Product use in unapproved indication [Unknown]
  - Tremor [Unknown]
  - Psychiatric symptom [Recovered/Resolved]
  - Dysstasia [Recovered/Resolved]
  - Application site pain [Unknown]

NARRATIVE: CASE EVENT DATE: 201705
